FAERS Safety Report 9674680 (Version 1)
Quarter: 2013Q4

REPORT INFORMATION
  Report Type: Spontaneous
  Country: US (occurrence: US)
  Receive Date: 20131107
  Receipt Date: 20131107
  Transmission Date: 20140711
  Serious: No
  Sender: FDA-Public Use
  Company Number: US-ENDO PHARMACEUTICALS INC.-ALLO20120005

PATIENT
  Sex: Male

DRUGS (1)
  1. ALLOPURINOL TABLETS 300MG [Suspect]
     Indication: PRODUCT USED FOR UNKNOWN INDICATION
     Dosage: 300 MG
     Route: 048

REACTIONS (3)
  - Oesophageal ulcer [Unknown]
  - Foreign body [Recovered/Resolved]
  - Cough [Recovered/Resolved]
